FAERS Safety Report 18179996 (Version 1)
Quarter: 2020Q3

REPORT INFORMATION
  Report Type: Spontaneous
  Country: US (occurrence: US)
  Receive Date: 20200821
  Receipt Date: 20200821
  Transmission Date: 20201103
  Serious: No
  Sender: FDA-Public Use
  Company Number: US-ASTRAZENECA-2020SE95238

PATIENT
  Age: 35 Year

DRUGS (1)
  1. FASENRA [Suspect]
     Active Substance: BENRALIZUMAB
     Indication: EOSINOPHILIC OESOPHAGITIS
     Dosage: 30.0MG UNKNOWN
     Route: 058
     Dates: start: 2020

REACTIONS (2)
  - Granulocyte count decreased [Unknown]
  - Off label use [Unknown]
